FAERS Safety Report 5796961-9 (Version None)
Quarter: 2008Q2

REPORT INFORMATION
  Report Type: 
  Country: None (occurrence: None)
  Receive Date: 20080627
  Receipt Date: 20080612
  Transmission Date: 20081010
  Serious: Yes (Disabling)
  Sender: FDA-Public Use
  Company Number: 2007EU002716

PATIENT
  Age: 63 Year
  Sex: Male
  Weight: 114 kg

DRUGS (9)
  1. PROGRAF [Suspect]
     Indication: RENAL TRANSPLANT
     Dosage: 8 MG ; 4 MG UID/QD ORAL
     Route: 048
     Dates: start: 20071114, end: 20080216
  2. CORTICOSTEROIDS [Suspect]
     Indication: RENAL TRANSPLANT
     Dosage: 20 MG; 15 MG UID/QD UNKNOWN
     Dates: start: 20071114
  3. MYCOPHENOLATE MOFETIL [Concomitant]
  4. DIURETICS [Concomitant]
  5. CALCIUM CHANNEL BLOCKERS [Concomitant]
  6. STATIN (TIABENDAZOLE) [Concomitant]
  7. INSULIN (INSULIN HUMAN) [Concomitant]
  8. BETA BLOCKING AGENTS [Concomitant]
  9. APREDNISLON (PREDNISOLONE) [Concomitant]

REACTIONS (12)
  - BLOOD CHOLESTEROL INCREASED [None]
  - BLOOD LACTATE DEHYDROGENASE INCREASED [None]
  - BLOOD TRIGLYCERIDES INCREASED [None]
  - CONDITION AGGRAVATED [None]
  - DIABETES MELLITUS [None]
  - DIALYSIS [None]
  - GLOMERULAR FILTRATION RATE DECREASED [None]
  - LOW DENSITY LIPOPROTEIN INCREASED [None]
  - PLATELET COUNT INCREASED [None]
  - POOR PERIPHERAL CIRCULATION [None]
  - RENAL DISORDER [None]
  - VASOCONSTRICTION [None]
